FAERS Safety Report 24738429 (Version 1)
Quarter: 2024Q4

REPORT INFORMATION
  Report Type: Report from Study
  Country: US (occurrence: US)
  Receive Date: 20241216
  Receipt Date: 20241216
  Transmission Date: 20250114
  Serious: Yes (Death, Hospitalization)
  Sender: BAYER HEALTHCARE PHARMACEUTICALS INC.
  Company Number: US-BAYER-2024A176624

PATIENT
  Age: 92 Year
  Sex: Male
  Weight: 135 kg

DRUGS (9)
  1. ADEMPAS [Suspect]
     Active Substance: RIOCIGUAT
  2. FUROSEMIDE [Concomitant]
     Active Substance: FUROSEMIDE
  3. METOPROLOL TARTRATE [Concomitant]
     Active Substance: METOPROLOL TARTRATE
  4. TRAVOPROST [Concomitant]
     Active Substance: TRAVOPROST
  5. ELIQUIS [Concomitant]
     Active Substance: APIXABAN
  6. TAMSULOSIN HYDROCHLORIDE [Concomitant]
     Active Substance: TAMSULOSIN HYDROCHLORIDE
  7. SIMBRINZA [Concomitant]
     Active Substance: BRIMONIDINE TARTRATE\BRINZOLAMIDE
  8. FINASTERIDE [Concomitant]
     Active Substance: FINASTERIDE
  9. LEVOTHYROXINE [Concomitant]
     Active Substance: LEVOTHYROXINE

REACTIONS (4)
  - Death [Fatal]
  - Peripheral swelling [None]
  - Lung disorder [None]
  - Cardiac failure congestive [None]

NARRATIVE: CASE EVENT DATE: 20241201
